FAERS Safety Report 23516356 (Version 1)
Quarter: 2024Q1

REPORT INFORMATION
  Report Type: Spontaneous
  Country: CN (occurrence: CN)
  Receive Date: 20240213
  Receipt Date: 20240213
  Transmission Date: 20240410
  Serious: Yes (Other)
  Sender: FDA-Public Use
  Company Number: None

PATIENT
  Age: 32 Year
  Sex: Female

DRUGS (14)
  1. LINEZOLID [Suspect]
     Active Substance: LINEZOLID
     Indication: Meningoencephalitis bacterial
     Dosage: UNK
     Route: 065
  2. LINEZOLID [Suspect]
     Active Substance: LINEZOLID
     Indication: Meningitis tuberculous
  3. BEDAQUILINE [Concomitant]
     Active Substance: BEDAQUILINE
     Indication: Meningoencephalitis bacterial
     Dosage: UNK
     Route: 065
  4. BEDAQUILINE [Concomitant]
     Active Substance: BEDAQUILINE
     Indication: Meningitis tuberculous
  5. FAROPENEM [Concomitant]
     Active Substance: FAROPENEM
     Indication: Meningoencephalitis bacterial
     Dosage: UNK
     Route: 065
  6. FAROPENEM [Concomitant]
     Active Substance: FAROPENEM
     Indication: Meningitis tuberculous
  7. ISONIAZID [Concomitant]
     Active Substance: ISONIAZID
     Indication: Meningoencephalitis bacterial
     Dosage: UNK
     Route: 065
  8. ISONIAZID [Concomitant]
     Active Substance: ISONIAZID
     Indication: Meningitis tuberculous
  9. MOXIFLOXACIN [Concomitant]
     Active Substance: MOXIFLOXACIN
     Indication: Meningoencephalitis bacterial
     Dosage: UNK
     Route: 065
  10. MOXIFLOXACIN [Concomitant]
     Active Substance: MOXIFLOXACIN
     Indication: Meningitis tuberculous
  11. PYRAZINAMIDE [Concomitant]
     Active Substance: PYRAZINAMIDE
     Indication: Meningoencephalitis bacterial
     Dosage: UNK
     Route: 065
  12. PYRAZINAMIDE [Concomitant]
     Active Substance: PYRAZINAMIDE
     Indication: Meningitis tuberculous
  13. RIFAMPIN [Concomitant]
     Active Substance: RIFAMPIN
     Indication: Meningoencephalitis bacterial
     Dosage: UNK
     Route: 065
  14. RIFAMPIN [Concomitant]
     Active Substance: RIFAMPIN
     Indication: Meningitis tuberculous

REACTIONS (4)
  - Neuropathy peripheral [Recovered/Resolved]
  - Hypoaesthesia [Recovered/Resolved]
  - Haematotoxicity [Recovered/Resolved]
  - White blood cell count decreased [Recovered/Resolved]
